FAERS Safety Report 7939441-4 (Version None)
Quarter: 2011Q4

REPORT INFORMATION
  Report Type: 
  Country: None (occurrence: None)
  Receive Date: 20111125
  Receipt Date: 20111117
  Transmission Date: 20120403
  Serious: Yes (Hospitalization, Other)
  Sender: FDA-Public Use
  Company Number: HR-GENZYME-POMP-1001840

PATIENT
  Sex: Female
  Weight: 8 kg

DRUGS (1)
  1. MYOZYME [Suspect]
     Indication: GLYCOGEN STORAGE DISEASE TYPE II
     Dosage: 20 MG/KG, Q2W
     Route: 042
     Dates: start: 20110523

REACTIONS (3)
  - ERYTHEMA [None]
  - DRUG HYPERSENSITIVITY [None]
  - FLUSHING [None]
